FAERS Safety Report 22048940 (Version 1)
Quarter: 2023Q1

REPORT INFORMATION
  Report Type: Report from Study
  Country: GB (occurrence: GB)
  Receive Date: 20230301
  Receipt Date: 20230301
  Transmission Date: 20230418
  Serious: Yes (Other)
  Sender: FDA-Public Use
  Company Number: GB-002147023-NVSC2021GB292094

PATIENT
  Age: 73 Year
  Sex: Female

DRUGS (3)
  1. COSENTYX [Suspect]
     Active Substance: SECUKINUMAB
     Indication: Psoriatic arthropathy
     Dosage: 150 MG, QMO (2 PRE-FILLED DISPOSABLE INJECTION)
     Route: 058
  2. COSENTYX [Suspect]
     Active Substance: SECUKINUMAB
     Dosage: 150 MG (FORTNIGHTLY)
     Route: 065
  3. COSENTYX [Suspect]
     Active Substance: SECUKINUMAB
     Dosage: 300 MG
     Route: 065

REACTIONS (5)
  - Psoriatic arthropathy [Unknown]
  - Arthralgia [Unknown]
  - Psoriasis [Unknown]
  - Product prescribing error [Unknown]
  - Drug ineffective [Unknown]
